FAERS Safety Report 6254388-X (Version None)
Quarter: 2009Q3

REPORT INFORMATION
  Report Type: 
  Country: None (occurrence: None)
  Receive Date: 20090702
  Receipt Date: 20090619
  Transmission Date: 20100115
  Serious: Yes (Other)
  Sender: FDA-Public Use
  Company Number: US-BIOGENIDEC-2009BI007377

PATIENT
  Age: 53 Year
  Sex: Female

DRUGS (1)
  1. TYSABRI [Suspect]
     Indication: MULTIPLE SCLEROSIS
     Route: 042
     Dates: start: 20070914

REACTIONS (19)
  - ASTHENIA [None]
  - BACTERIAL INFECTION [None]
  - BLOOD CHOLESTEROL INCREASED [None]
  - BONE PAIN [None]
  - BREAST CYST [None]
  - DISTURBANCE IN ATTENTION [None]
  - DYSGRAPHIA [None]
  - DYSPHAGIA [None]
  - DYSPNOEA [None]
  - FATIGUE [None]
  - FLUID RETENTION [None]
  - MAMMOGRAM ABNORMAL [None]
  - MULTIPLE SCLEROSIS RELAPSE [None]
  - MUSCULOSKELETAL PAIN [None]
  - NASAL DISCOMFORT [None]
  - NYSTAGMUS [None]
  - PULMONARY FIBROSIS [None]
  - TRIGEMINAL NEURALGIA [None]
  - WEIGHT INCREASED [None]
